FAERS Safety Report 21651770 (Version 1)
Quarter: 2022Q4

REPORT INFORMATION
  Report Type: Spontaneous
  Country: FR (occurrence: FR)
  Receive Date: 20221128
  Receipt Date: 20221128
  Transmission Date: 20230112
  Serious: Yes (Hospitalization)
  Sender: FDA-Public Use
  Company Number: None

PATIENT
  Age: 70 Year
  Sex: Male

DRUGS (4)
  1. CYTARABINE [Suspect]
     Active Substance: CYTARABINE
     Indication: Acute leukaemia
     Dosage: 200 MG
     Route: 042
     Dates: start: 20220930, end: 20221005
  2. IDARUBICIN HYDROCHLORIDE [Suspect]
     Active Substance: IDARUBICIN HYDROCHLORIDE
     Indication: Acute leukaemia
     Dosage: 16 MG
     Route: 042
     Dates: start: 20220930, end: 20221003
  3. MEROPENEM [Suspect]
     Active Substance: MEROPENEM
     Indication: Infection
     Dosage: 3 G
     Route: 042
     Dates: start: 20220930, end: 20221020
  4. LOMUSTINE [Suspect]
     Active Substance: LOMUSTINE
     Indication: Acute leukaemia
     Dosage: 394 MG
     Route: 048
     Dates: start: 20220930, end: 20220930

REACTIONS (2)
  - Hypokalaemia [Recovered/Resolved]
  - Blood phosphorus decreased [Recovered/Resolved]

NARRATIVE: CASE EVENT DATE: 20220930
